FAERS Safety Report 5873796-X (Version None)
Quarter: 2008Q3

REPORT INFORMATION
  Report Type: 
  Country: None (occurrence: None)
  Receive Date: 20080903
  Receipt Date: 20080903
  Transmission Date: 20090109
  Serious: Yes (Other)
  Sender: FDA-Public Use
  Company Number: None

PATIENT
  Age: 10 Year
  Sex: Male
  Weight: 56.6996 kg

DRUGS (2)
  1. SINGULAIR [Suspect]
     Indication: ASTHMA
     Dosage: 10 MG EVERY DAY PO
     Route: 048
     Dates: start: 20071101, end: 20080501
  2. SINGULAIR [Suspect]
     Indication: SEASONAL ALLERGY
     Dosage: 10 MG EVERY DAY PO
     Route: 048
     Dates: start: 20071101, end: 20080501

REACTIONS (14)
  - ABNORMAL BEHAVIOUR [None]
  - AGGRESSION [None]
  - CRYING [None]
  - DEPRESSED LEVEL OF CONSCIOUSNESS [None]
  - EDUCATIONAL PROBLEM [None]
  - INSOMNIA [None]
  - MOOD ALTERED [None]
  - MOOD SWINGS [None]
  - OBSESSIVE THOUGHTS [None]
  - PAIN [None]
  - PERSONALITY CHANGE [None]
  - SOMNOLENCE [None]
  - THINKING ABNORMAL [None]
  - VIOLENCE-RELATED SYMPTOM [None]
